FAERS Safety Report 23741754 (Version 1)
Quarter: 2024Q2

REPORT INFORMATION
  Report Type: Spontaneous
  Country: FR (occurrence: None)
  Receive Date: 20240415
  Receipt Date: 20240415
  Transmission Date: 20240716
  Serious: Yes (Other)
  Sender: FDA-Public Use
  Company Number: FR-Unichem Pharmaceuticals (USA) Inc-UCM202404-000361

PATIENT
  Age: 38 Year
  Sex: Male

DRUGS (3)
  1. BACLOFEN [Suspect]
     Active Substance: BACLOFEN
     Indication: Alcohol use disorder
     Route: 048
  2. HEROIN [Suspect]
     Active Substance: DIAMORPHINE
     Indication: Product used for unknown indication
     Dosage: UNKNOWN
  3. COCAINE [Suspect]
     Active Substance: COCAINE
     Indication: Product used for unknown indication
     Dosage: UNKNOWN

REACTIONS (9)
  - Coma [Unknown]
  - Communication disorder [Unknown]
  - Salivary hypersecretion [Unknown]
  - Rhinorrhoea [Unknown]
  - Nocturia [Unknown]
  - Tremor [Unknown]
  - Miosis [Unknown]
  - Intentional product misuse [Unknown]
  - Product use in unapproved indication [Unknown]
